FAERS Safety Report 9240803 (Version 3)
Quarter: 2015Q2

REPORT INFORMATION
  Report Type: Spontaneous
  Country: US (occurrence: US)
  Receive Date: 20130418
  Receipt Date: 20150608
  Transmission Date: 20150821
  Serious: Yes (Death, Hospitalization, Other)
  Sender: FDA-Public Use
  Company Number: US-MERCK-1304USA008447

PATIENT
  Sex: Female
  Weight: 85.71 kg

DRUGS (2)
  1. JANUVIA [Suspect]
     Active Substance: SITAGLIPTIN PHOSPHATE
     Indication: TYPE 2 DIABETES MELLITUS
     Dosage: 25 MG, QD
     Route: 048
     Dates: start: 20090428, end: 20101229
  2. JANUVIA [Suspect]
     Active Substance: SITAGLIPTIN PHOSPHATE
     Dosage: 100 MG, QD
     Route: 048
     Dates: start: 20101229, end: 20110218

REACTIONS (23)
  - Metastases to liver [Fatal]
  - Pancreaticoduodenectomy [Unknown]
  - Dyslipidaemia [Unknown]
  - Respiratory failure [Fatal]
  - Surgery [Unknown]
  - Urinary tract infection [Unknown]
  - Hypercholesterolaemia [Unknown]
  - Hypertension [Unknown]
  - Failure to thrive [Recovered/Resolved]
  - Lung adenocarcinoma [Fatal]
  - Surgery [Unknown]
  - Biliary sphincterotomy [Unknown]
  - Metastases to pleura [Fatal]
  - Gastritis [Unknown]
  - Gastrooesophageal reflux disease [Unknown]
  - Insulin-requiring type 2 diabetes mellitus [Unknown]
  - Foot fracture [Unknown]
  - Liver abscess [Unknown]
  - Malignant neoplasm of ampulla of Vater [Fatal]
  - Polymyalgia rheumatica [Unknown]
  - Pancreatitis chronic [Not Recovered/Not Resolved]
  - Cholangiocarcinoma [Fatal]
  - Neuropathy peripheral [Unknown]

NARRATIVE: CASE EVENT DATE: 2011
